FAERS Safety Report 5338653-6 (Version None)
Quarter: 2007Q2

REPORT INFORMATION
  Report Type: 
  Country: None (occurrence: None)
  Receive Date: 20070530
  Receipt Date: 20070314
  Transmission Date: 20071010
  Serious: No
  Sender: FDA-Public Use
  Company Number: A0643212A

PATIENT
  Sex: Male

DRUGS (1)
  1. ARRANON [Suspect]
     Route: 042
     Dates: start: 20070101

REACTIONS (1)
  - TREMOR [None]
